FAERS Safety Report 5997352-8 (Version None)
Quarter: 2008Q4

REPORT INFORMATION
  Report Type: 
  Country: None (occurrence: None)
  Receive Date: 20081210
  Receipt Date: 20081126
  Transmission Date: 20090506
  Serious: Yes (Other)
  Sender: FDA-Public Use
  Company Number: WAES 0812USA00236

PATIENT
  Age: 49 Year
  Sex: Female

DRUGS (11)
  1. ZETIA [Suspect]
     Indication: HYPERCHOLESTEROLAEMIA
     Dosage: 10 MG/DAILY PO
     Route: 048
     Dates: start: 20080609, end: 20080907
  2. [THERAPY UNSPECIFIED] [Concomitant]
  3. AMOBARBITAL SODIUM [Concomitant]
  4. BIPERIDEN HYDROCHLORIDE TAB [Concomitant]
  5. CLOXAZOLAM [Concomitant]
  6. DOMPERIDONE [Concomitant]
  7. ETIZOLAM [Concomitant]
  8. HALOPERIDOL [Concomitant]
  9. LORMETAZEPAM [Concomitant]
  10. PHENOBARBITAL [Concomitant]
  11. SULPIRIDE [Concomitant]

REACTIONS (4)
  - ALANINE AMINOTRANSFERASE INCREASED [None]
  - ASPARTATE AMINOTRANSFERASE INCREASED [None]
  - GAMMA-GLUTAMYLTRANSFERASE INCREASED [None]
  - LIVER DISORDER [None]
